FAERS Safety Report 17692884 (Version 1)
Quarter: 2020Q2

REPORT INFORMATION
  Report Type: Spontaneous
  Country: BR (occurrence: BR)
  Receive Date: 20200422
  Receipt Date: 20200422
  Transmission Date: 20200714
  Serious: Yes (Other)
  Sender: FDA-Public Use
  Company Number: BR-PFIZER INC-2020155963

PATIENT
  Age: 10 Month
  Sex: Male
  Weight: 6.32 kg

DRUGS (21)
  1. ALTEPLASE. [Concomitant]
     Active Substance: ALTEPLASE
     Dosage: 1 SYRINGE, DAILY
     Dates: start: 20191004, end: 20191004
  2. DORMONID [MIDAZOLAM] [Concomitant]
     Dosage: 1.5 MG, DAILY
     Route: 042
     Dates: end: 20190929
  3. HUMAN ALBUMIN [Concomitant]
     Active Substance: ALBUMIN HUMAN
     Dosage: 10 ML, DAILY
     Route: 042
     Dates: start: 20190927, end: 20190927
  4. GLYCERIN INFANTILE [Concomitant]
     Dosage: 1 SUPPOSITORY, DAILY
     Route: 054
     Dates: start: 20191002, end: 20191002
  5. MERONEM [Suspect]
     Active Substance: MEROPENEM
     Dosage: 230 MG, 3X/DAY
     Route: 042
     Dates: start: 20190929, end: 20191005
  6. DIAMOX SEQUELS [Concomitant]
     Active Substance: ACETAZOLAMIDE
     Dosage: 50 MG, EVERY 8 HOURS
     Route: 048
     Dates: end: 20191005
  7. KANAKION MM PEDIATRICO [Concomitant]
     Dosage: 5 MG, 1X/DAY
     Route: 042
     Dates: start: 20191002, end: 20191002
  8. GLUCOSE [Concomitant]
     Active Substance: DEXTROSE
     Dosage: 15 ML, DAILY
     Route: 042
     Dates: start: 20190929, end: 20190929
  9. LORAZEPAM. [Concomitant]
     Active Substance: LORAZEPAM
     Dosage: 0.5 MG, 1X/DAY
     Route: 048
     Dates: end: 20191005
  10. LUFTAL [DIMETICONE] [Concomitant]
     Dosage: 6 GTT, 4X/DAY
     Route: 048
     Dates: end: 20191005
  11. FENTANIL [Concomitant]
     Active Substance: FENTANYL
     Dosage: 10 UG, DAILY
     Route: 042
     Dates: end: 20190930
  12. OMEPRAZOLE. [Concomitant]
     Active Substance: OMEPRAZOLE
     Dosage: 6 MG, DAILY
     Route: 042
     Dates: end: 20191003
  13. SODIUM BICARBONATE. [Concomitant]
     Active Substance: SODIUM BICARBONATE
     Dosage: 10 ML, DAILY
     Route: 042
     Dates: start: 20191027, end: 20191027
  14. DANTROLEN [Concomitant]
     Active Substance: DANTROLENE SODIUM
     Dosage: 5 MG, DAILY
     Route: 042
     Dates: end: 20190929
  15. VANCOCINA [Concomitant]
     Dosage: 60 MG, DAILY
     Route: 042
     Dates: end: 20190928
  16. LIDOCAINE. [Concomitant]
     Active Substance: LIDOCAINE
     Dosage: 7.065 MG, DAILY
     Route: 042
     Dates: start: 20191003, end: 20191003
  17. VANCOMYCIN [Concomitant]
     Active Substance: VANCOMYCIN
     Dosage: 30 MG, 4X/DAY
     Route: 042
     Dates: end: 20191005
  18. ADREN [Concomitant]
     Dosage: 5 MG, DAILY
     Dates: start: 20191001, end: 20191001
  19. DIPYRONE [Concomitant]
     Active Substance: DIPYRONE
     Dosage: 0.3 ML, DAILY
     Route: 042
     Dates: end: 20191002
  20. MEROPENEM. [Concomitant]
     Active Substance: MEROPENEM
     Dosage: 230 MG, 3X/DAY
     Route: 042
     Dates: end: 20191003
  21. METHADONE [Concomitant]
     Active Substance: METHADONE HYDROCHLORIDE
     Dosage: 0.5 MG, DAILY
     Route: 048
     Dates: end: 20191005

REACTIONS (4)
  - Oedema [Recovered/Resolved]
  - Erythema [Recovered/Resolved]
  - Localised oedema [Recovered/Resolved]
  - Oedema mouth [Recovered/Resolved]

NARRATIVE: CASE EVENT DATE: 20191005
